FAERS Safety Report 8226445-X (Version None)
Quarter: 2012Q1

REPORT INFORMATION
  Report Type: 
  Country: None (occurrence: None)
  Receive Date: 20120321
  Receipt Date: 20120313
  Transmission Date: 20120608
  Serious: Yes (Hospitalization, Other)
  Sender: FDA-Public Use
  Company Number: US-ASTRAZENECA-2012SE00054

PATIENT
  Age: 21832 Day
  Sex: Male
  Weight: 88.5 kg

DRUGS (14)
  1. ASPIRIN [Concomitant]
     Dosage: 325 A DAY
  2. MAGNESIUM HYDROXIDE TAB [Concomitant]
     Dosage: DAILY
  3. FISH OIL [Concomitant]
     Dosage: 1000 A DAY
  4. CARVEDILOL [Concomitant]
     Dosage: 6.25 BID
  5. MULTI-VITAMINS [Concomitant]
     Dosage: DAILY
  6. LISINOPRIL [Suspect]
     Route: 048
  7. VITAMIN D [Concomitant]
  8. VITAMIN B COMPLEX CAP [Concomitant]
  9. MILK OF MAGNESIA TAB [Concomitant]
     Dosage: AS REQUIRED
  10. ASCORBIC ACID [Concomitant]
  11. TYLENOL [Concomitant]
     Dosage: AS REQUIRED
  12. WELLBUTRIN XL [Concomitant]
  13. CRESTOR [Suspect]
     Indication: HYPERLIPIDAEMIA
     Route: 048
  14. PLAVIX [Concomitant]
     Dosage: 75 A DAY

REACTIONS (3)
  - TYPE 2 DIABETES MELLITUS [None]
  - ACUTE MYOCARDIAL INFARCTION [None]
  - CARBON MONOXIDE POISONING [None]
